FAERS Safety Report 4512076-1 (Version None)
Quarter: 2004Q4

REPORT INFORMATION
  Report Type: 
  Country: None (occurrence: None)
  Receive Date: 20041123
  Receipt Date: 20041109
  Transmission Date: 20050328
  Serious: Yes (Death, Life-Threatening, Hospitalization)
  Sender: FDA-Public Use
  Company Number: D01200404552

PATIENT
  Age: 78 Year
  Sex: Male

DRUGS (5)
  1. (CLOPIDOGREL) - TABLET - 75 MG [Suspect]
     Indication: ANGIOPATHY
     Dosage: 75 MG QD, ORAL
     Route: 048
     Dates: start: 20040203, end: 20041028
  2. (CLOPIDOGREL) - TABLET - 75 MG [Suspect]
     Indication: PROPHYLAXIS
     Dosage: 75 MG QD, ORAL
     Route: 048
     Dates: start: 20040203, end: 20041028
  3. (IRBESARTAN/PLACEBO) - TABLET - 150 MG [Suspect]
     Indication: ANGIOPATHY
     Dosage: 150 MG/DAY FOR 2 WEEKS FOLLOWING BY 300 MG/DAY, ORAL
     Route: 048
     Dates: start: 20040203
  4. (IRBESARTAN/PLACEBO) - TABLET - 150 MG [Suspect]
     Indication: PROPHYLAXIS
     Dosage: 150 MG/DAY FOR 2 WEEKS FOLLOWING BY 300 MG/DAY, ORAL
     Route: 048
     Dates: start: 20040203
  5. ACETYLSALICYLIC ACID SRT [Concomitant]

REACTIONS (7)
  - AV DISSOCIATION [None]
  - CARDIAC ARREST [None]
  - CARDIOGENIC SHOCK [None]
  - HAEMATURIA [None]
  - HAEMORRHAGE [None]
  - PROSTATISM [None]
  - URINARY RETENTION [None]
